FAERS Safety Report 9122725 (Version 2)
Quarter: 2013Q1

REPORT INFORMATION
  Report Type: Spontaneous
  Country: US (occurrence: US)
  Receive Date: 20130227
  Receipt Date: 20130322
  Transmission Date: 20140127
  Serious: Yes (Death)
  Sender: FDA-Public Use
  Company Number: US-ELI_LILLY_AND_COMPANY-US201107001990

PATIENT
  Age: 78 Year
  Sex: Male
  Weight: 69.39 kg

DRUGS (2)
  1. FORTEO [Suspect]
     Indication: OSTEOPOROSIS
     Dosage: 20 UG, QD
     Dates: start: 20110705
  2. FORTEO [Suspect]
     Dosage: 20 UG, QD
     Dates: end: 201206

REACTIONS (5)
  - Non-Hodgkin^s lymphoma [Fatal]
  - Dementia [Fatal]
  - General physical health deterioration [Not Recovered/Not Resolved]
  - Feeling hot [Recovered/Resolved]
  - Flushing [Recovered/Resolved]
